FAERS Safety Report 4358530-7 (Version None)
Quarter: 2004Q2

REPORT INFORMATION
  Report Type: 
  Country: None (occurrence: None)
  Receive Date: 20040512
  Receipt Date: 20040428
  Transmission Date: 20050107
  Serious: Yes (Death)
  Sender: FDA-Public Use
  Company Number: 2004-DE-02368GD

PATIENT
  Age: 25 Year
  Sex: Female

DRUGS (6)
  1. PREDNISONE [Suspect]
     Indication: PERIPHERAL T-CELL LYMPHOMA UNSPECIFIED STAGE IV
  2. AZATHIOPRINE [Suspect]
     Indication: PERIPHERAL T-CELL LYMPHOMA UNSPECIFIED STAGE IV
  3. CYCLOPHOSPHAMIDE [Suspect]
     Indication: PERIPHERAL T-CELL LYMPHOMA UNSPECIFIED STAGE IV
  4. VINCRISTINE [Suspect]
     Indication: PERIPHERAL T-CELL LYMPHOMA UNSPECIFIED STAGE IV
  5. CYCLOSPORINE [Suspect]
     Indication: PERIPHERAL T-CELL LYMPHOMA UNSPECIFIED STAGE IV
  6. FLUDARABINE (FLUDARABINE) [Suspect]
     Indication: PERIPHERAL T-CELL LYMPHOMA UNSPECIFIED STAGE IV

REACTIONS (22)
  - ALOPECIA [None]
  - ARTHRALGIA [None]
  - ATRIAL FIBRILLATION [None]
  - BIOPSY LIVER ABNORMAL [None]
  - CAESAREAN SECTION [None]
  - CUSHINGOID [None]
  - DECREASED APPETITE [None]
  - DISSEMINATED INTRAVASCULAR COAGULATION [None]
  - DRUG EFFECT DECREASED [None]
  - DRUG EXPOSURE DURING PREGNANCY [None]
  - ERYTHEMA NODOSUM [None]
  - ESCHERICHIA URINARY TRACT INFECTION [None]
  - HEPATIC NECROSIS [None]
  - HEPATIC STEATOSIS [None]
  - HISTIOCYTOSIS HAEMATOPHAGIC [None]
  - POST PROCEDURAL COMPLICATION [None]
  - PREMATURE BABY [None]
  - PULMONARY EMBOLISM [None]
  - RASH [None]
  - SARCOIDOSIS [None]
  - SUBCUTANEOUS NODULE [None]
  - WEIGHT DECREASED [None]
